FAERS Safety Report 7344143-1 (Version None)
Quarter: 2011Q1

REPORT INFORMATION
  Report Type: 
  Country: None (occurrence: None)
  Receive Date: 20110310
  Receipt Date: 20100708
  Transmission Date: 20110831
  Serious: No
  Sender: FDA-Public Use
  Company Number: A0869217A

PATIENT
  Age: 77 Year
  Sex: Male

DRUGS (1)
  1. NICORETTE [Suspect]
     Dates: start: 20100630, end: 20100705

REACTIONS (6)
  - DIZZINESS [None]
  - VERTIGO [None]
  - DRUG INEFFECTIVE [None]
  - HYPERCHLORHYDRIA [None]
  - ABDOMINAL DISTENSION [None]
  - BALANCE DISORDER [None]
